FAERS Safety Report 10463477 (Version 1)
Quarter: 2014Q3

REPORT INFORMATION
  Report Type: Spontaneous
  Country: US (occurrence: None)
  Receive Date: 20140917
  Receipt Date: 20140917
  Transmission Date: 20150326
  Serious: Yes (Other)
  Sender: FDA-Public Use
  Company Number: ADR-2014-01665

PATIENT
  Age: 51 Year
  Sex: Female

DRUGS (4)
  1. BUPIVACAINE INTRATHECAL [Suspect]
     Active Substance: BUPIVACAINE
  2. BACLOFEN INTRATHECAL [Suspect]
     Active Substance: BACLOFEN
     Indication: PAIN
  3. CLONIDINE. [Suspect]
     Active Substance: CLONIDINE
  4. DILAUDID [Suspect]
     Active Substance: HYDROMORPHONE HYDROCHLORIDE
     Indication: PAIN

REACTIONS (7)
  - Chills [None]
  - Gait disturbance [None]
  - Vomiting [None]
  - Pyrexia [None]
  - Pain [None]
  - Drug withdrawal syndrome [None]
  - Nausea [None]
